FAERS Safety Report 16956498 (Version 1)
Quarter: 2019Q4

REPORT INFORMATION
  Report Type: Spontaneous
  Country: US (occurrence: US)
  Receive Date: 20191024
  Receipt Date: 20191024
  Transmission Date: 20200122
  Serious: Yes (Other)
  Sender: FDA-Public Use
  Company Number: US-ROCHE-2452693

PATIENT
  Age: 16 Year
  Sex: Female

DRUGS (2)
  1. ACTILYSE [Suspect]
     Active Substance: ALTEPLASE
     Indication: DEEP VEIN THROMBOSIS
     Dosage: BOLUS (1 EVERY 1 ONCE)
     Route: 065
  2. LOVENOX [Concomitant]
     Active Substance: ENOXAPARIN SODIUM
     Indication: PRODUCT USED FOR UNKNOWN INDICATION
     Dosage: FOR 6 MONTHS?1 MG/KG TWICE DAILY (BID) FOR 48 HOURS, THEN INCREASED TO 2 MG/KG DAILY (QD) AS AN OUTP
     Route: 058

REACTIONS (4)
  - Product use in unapproved indication [Unknown]
  - Off label use [Unknown]
  - Cerebral infarction [Recovering/Resolving]
  - Hemianopia homonymous [Unknown]
